FAERS Safety Report 22530987 (Version 1)
Quarter: 2023Q2

REPORT INFORMATION
  Report Type: Spontaneous
  Country: FR (occurrence: FR)
  Receive Date: 20230607
  Receipt Date: 20230607
  Transmission Date: 20230721
  Serious: Yes (Death)
  Sender: FDA-Public Use
  Company Number: FR-AFSSAPS-AM2023000268

PATIENT
  Age: 51 Year
  Sex: Male

DRUGS (1)
  1. MORPHINE [Suspect]
     Active Substance: MORPHINE
     Indication: Palliative care
     Dosage: 10 MILLIGRAM, Q1H
     Route: 040
     Dates: start: 20221026

REACTIONS (2)
  - Incorrect dose administered [Fatal]
  - Coma [Fatal]

NARRATIVE: CASE EVENT DATE: 20221118
